FAERS Safety Report 20131671 (Version 5)
Quarter: 2022Q1

REPORT INFORMATION
  Report Type: Report from Study
  Country: AT (occurrence: AT)
  Receive Date: 20211130
  Receipt Date: 20220118
  Transmission Date: 20220423
  Serious: Yes (Death, Other)
  Sender: FDA-Public Use
  Company Number: AT-ALXN-A202113066

PATIENT
  Age: 83 Year
  Sex: Female
  Weight: 52 kg

DRUGS (24)
  1. ANDEXXA [Suspect]
     Active Substance: ANDEXANET ALFA
     Indication: Product used for unknown indication
     Dosage: 400 MG, UNK
     Route: 040
     Dates: start: 20211123, end: 20211123
  2. ANDEXXA [Suspect]
     Active Substance: ANDEXANET ALFA
     Dosage: 480 MG, UNK
     Route: 041
     Dates: start: 20211123, end: 20211123
  3. METHYLPREDNISOLONE ACEPONATE [Concomitant]
     Active Substance: METHYLPREDNISOLONE ACEPONATE
     Indication: Product used for unknown indication
     Dosage: 0.5 G, QD
     Route: 050
     Dates: start: 20211123
  4. APIXABAN [Concomitant]
     Active Substance: APIXABAN
     Indication: Atrial fibrillation
     Dosage: 2.5 MG, QD (1 -0 -1 -0)
     Route: 048
     Dates: end: 20211123
  5. CALCIUM CARBONATE\CHOLECALCIFEROL [Concomitant]
     Active Substance: CALCIUM CARBONATE\CHOLECALCIFEROL
     Indication: Product used for unknown indication
     Dosage: 1 -0 -0 -0, QD
     Route: 048
     Dates: start: 20211123
  6. CEFUROXIME [Concomitant]
     Active Substance: CEFUROXIME
     Indication: Product used for unknown indication
     Dosage: 1 INF
     Route: 042
     Dates: start: 20211123, end: 20211123
  7. DAFLON                             /00426001/ [Concomitant]
     Indication: Product used for unknown indication
     Dosage: 1 -0 -1 -0 (PC), QD
     Route: 048
     Dates: start: 20211123, end: 20211123
  8. ELOMEL [Concomitant]
     Indication: Product used for unknown indication
     Dosage: 1000 ML, UNK
     Route: 042
     Dates: start: 20211124, end: 20211124
  9. ELOMEL [Concomitant]
     Dosage: 500 ML, UNK
     Route: 042
     Dates: start: 20211125, end: 20211125
  10. FERRETAB                           /00023505/ [Concomitant]
     Indication: Product used for unknown indication
     Dosage: 1 -0 -0 -0, QD
     Route: 048
     Dates: start: 20211123
  11. DEXTROSE [Concomitant]
     Active Substance: DEXTROSE
     Indication: Hypoglycaemia
     Dosage: 250 ML, UNK
     Route: 042
     Dates: start: 20211124, end: 20211124
  12. DEXTROSE [Concomitant]
     Active Substance: DEXTROSE
     Dosage: 250 ML, UNK
     Route: 042
     Dates: start: 20211125, end: 20211125
  13. GLUCOTAB [Concomitant]
     Indication: Product used for unknown indication
     Dosage: 1 -0 -0 -0, QD
     Route: 048
     Dates: start: 20211123
  14. HUMALOG [Concomitant]
     Active Substance: INSULIN LISPRO
     Indication: Product used for unknown indication
     Dosage: 10 IU, QD
     Route: 065
  15. LOVENOX [Concomitant]
     Active Substance: ENOXAPARIN SODIUM
     Indication: Product used for unknown indication
     Dosage: 0 -0 -1 -0; IU QD
     Route: 058
     Dates: start: 20211123
  16. DIPYRONE [Concomitant]
     Active Substance: DIPYRONE
     Indication: Product used for unknown indication
     Dosage: 1-1-1-1-1-1; QD
     Route: 042
     Dates: start: 20211123
  17. MOXONIDINE [Concomitant]
     Active Substance: MOXONIDINE
     Indication: Product used for unknown indication
     Dosage: 0.2 MG, QD
     Route: 048
     Dates: start: 20211123
  18. OLEOVIT                            /00056001/ [Concomitant]
     Indication: Product used for unknown indication
     Dosage: 12.5 ML, SINGLE
     Dates: start: 20211124, end: 20211124
  19. ACETAMINOPHEN [Concomitant]
     Active Substance: ACETAMINOPHEN
     Indication: Product used for unknown indication
     Dosage: 50 ML, Q8H
     Route: 042
     Dates: start: 20211123
  20. PIRITRAMIDE [Concomitant]
     Active Substance: PIRITRAMIDE
     Indication: Pain
     Dosage: 1 INF, MAX 4 TIMES DAILY
     Route: 042
     Dates: start: 20211123
  21. ATORVASTATIN [Concomitant]
     Active Substance: ATORVASTATIN
     Indication: Product used for unknown indication
     Dosage: 20 MG, QD
     Route: 048
     Dates: start: 20211123
  22. LINAGLIPTIN [Concomitant]
     Active Substance: LINAGLIPTIN
     Indication: Product used for unknown indication
     Dosage: 5 MG, QD
     Route: 065
  23. HYDROCHLOROTHIAZIDE\RAMIPRIL [Concomitant]
     Active Substance: HYDROCHLOROTHIAZIDE\RAMIPRIL
     Indication: Product used for unknown indication
     Dosage: 1-0 -0 -0, QD
     Route: 048
     Dates: start: 20211123
  24. ZOFRAN                             /00955301/ [Concomitant]
     Indication: Product used for unknown indication
     Dosage: 4 MG, UNK
     Route: 065
     Dates: start: 20211124, end: 20211124

REACTIONS (1)
  - Thrombosis [Fatal]

NARRATIVE: CASE EVENT DATE: 20211125
